FAERS Safety Report 17276016 (Version 2)
Quarter: 2020Q2

REPORT INFORMATION
  Report Type: Report from Study
  Country: GB (occurrence: GB)
  Receive Date: 20200116
  Receipt Date: 20200602
  Transmission Date: 20200713
  Serious: Yes (Death, Hospitalization, Other)
  Sender: FDA-Public Use
  Company Number: GB-ACCORD-169302

PATIENT
  Age: 64 Year
  Sex: Female

DRUGS (16)
  1. RIVAROXABAN [Concomitant]
     Active Substance: RIVAROXABAN
     Indication: PYREXIA
     Route: 048
     Dates: start: 20151014, end: 20151103
  2. TAZOCIN [Concomitant]
     Active Substance: PIPERACILLIN SODIUM\TAZOBACTAM SODIUM
     Indication: PYREXIA
     Route: 042
     Dates: start: 20151005, end: 20151012
  3. DALTEPARIN [Concomitant]
     Active Substance: DALTEPARIN
     Route: 058
     Dates: start: 20151005, end: 20151014
  4. RIVAROXABAN [Concomitant]
     Active Substance: RIVAROXABAN
     Route: 048
     Dates: start: 20151104
  5. DOCETAXEL. [Suspect]
     Active Substance: DOCETAXEL
     Indication: BREAST CANCER METASTATIC
     Route: 042
     Dates: start: 20150714, end: 20150915
  6. AMOXICILLIN. [Concomitant]
     Active Substance: AMOXICILLIN
     Indication: CELLULITIS
     Route: 048
     Dates: start: 20150929
  7. TRASTUZUMAB. [Suspect]
     Active Substance: TRASTUZUMAB
     Indication: BREAST CANCER METASTATIC
     Dosage: MAINTAINANCE DOSE., DATE AND TIME OF LAST ADMINISTRATION: 21-MAY-2015
     Route: 042
     Dates: start: 20150622
  8. DOCETAXEL. [Suspect]
     Active Substance: DOCETAXEL
     Indication: BREAST CANCER METASTATIC
     Route: 042
     Dates: start: 20150622, end: 20150622
  9. PERTUZUMAB. [Suspect]
     Active Substance: PERTUZUMAB
     Indication: BREAST CANCER METASTATIC
     Dosage: DATE AND TIME OF LAST ADMINISTRATION: 20-MAY-2015
     Route: 042
     Dates: start: 20150520
  10. AMOXICILLIN. [Concomitant]
     Active Substance: AMOXICILLIN
     Indication: CELLULITIS
     Route: 065
     Dates: start: 20160122
  11. FLUCONAZOLE. [Concomitant]
     Active Substance: FLUCONAZOLE
     Route: 048
     Dates: start: 20160122, end: 20160203
  12. FLUCLOXACILLIN [Concomitant]
     Active Substance: FLUCLOXACILLIN
     Indication: CELLULITIS
     Route: 048
     Dates: start: 20150929
  13. STREPTOKINASE/STREPTOKINASE/ACYLATED DERIVA [Concomitant]
     Dosage: 250000
     Route: 042
     Dates: start: 20151005, end: 20151014
  14. DOCETAXEL. [Suspect]
     Active Substance: DOCETAXEL
     Indication: BREAST CANCER METASTATIC
     Route: 042
     Dates: start: 20150522, end: 20150522
  15. PERTUZUMAB. [Suspect]
     Active Substance: PERTUZUMAB
     Indication: BREAST CANCER METASTATIC
     Dosage: DATE AND TIME OF LAST ADMINISTRATION: 19-NOV-2015, MAINTAINANCE DOSE
     Route: 042
     Dates: start: 20150622
  16. TRASTUZUMAB. [Suspect]
     Active Substance: TRASTUZUMAB
     Indication: PRODUCT USED FOR UNKNOWN INDICATION
     Dosage: LOADING DOSE, DATE AND TIME OF LAST ADMINISTRATION: 21-MAY-2015
     Route: 042
     Dates: start: 20150521

REACTIONS (10)
  - Sepsis [Recovered/Resolved]
  - Nausea [Recovered/Resolved]
  - Productive cough [Recovered/Resolved]
  - Device related infection [Recovered/Resolved]
  - Pulmonary embolism [Recovered/Resolved]
  - Catheter site erythema [Recovered/Resolved]
  - Decreased appetite [Recovered/Resolved]
  - Lower respiratory tract infection [Recovered/Resolved]
  - Cellulitis [Recovered/Resolved]
  - Catheter site hypersensitivity [Recovered/Resolved]

NARRATIVE: CASE EVENT DATE: 201509
